FAERS Safety Report 10426954 (Version 1)
Quarter: 2014Q3

REPORT INFORMATION
  Report Type: Spontaneous
  Country: US (occurrence: None)
  Receive Date: 20140902
  Receipt Date: 20140902
  Transmission Date: 20150326
  Serious: No
  Sender: FDA-Public Use
  Company Number: None

PATIENT
  Age: 73 Year
  Sex: Female
  Weight: 65.77 kg

DRUGS (2)
  1. CARVEDILOL 6.25MG AUROBINDO PHARM [Suspect]
     Active Substance: CARVEDILOL
     Indication: HYPERTENSION
     Dosage: 1 PILL  TWICE DAILY ORAL
     Route: 048
  2. CARVEDILOL 6.25MG AUROBINDO PHARM [Suspect]
     Active Substance: CARVEDILOL
     Indication: CORONARY ARTERY STENOSIS
     Dosage: 1 PILL  TWICE DAILY ORAL
     Route: 048

REACTIONS (6)
  - Abdominal pain upper [None]
  - Loss of consciousness [None]
  - Fatigue [None]
  - Presyncope [None]
  - Pollakiuria [None]
  - Functional gastrointestinal disorder [None]
